FAERS Safety Report 12507338 (Version 1)
Quarter: 2016Q2

REPORT INFORMATION
  Report Type: Spontaneous
  Country: HK (occurrence: HK)
  Receive Date: 20160629
  Receipt Date: 20160629
  Transmission Date: 20160815
  Serious: Yes (Other)
  Sender: FDA-Public Use
  Company Number: HK-ACCORD-041925

PATIENT
  Age: 10 Year
  Sex: Male

DRUGS (2)
  1. CICLOSPORIN [Concomitant]
     Active Substance: CYCLOSPORINE
  2. TACROLIMUS. [Suspect]
     Active Substance: TACROLIMUS
     Indication: PRODUCT USED FOR UNKNOWN INDICATION

REACTIONS (1)
  - Drug dependence [Unknown]
